FAERS Safety Report 11202691 (Version 2)
Quarter: 2015Q3

REPORT INFORMATION
  Report Type: Spontaneous
  Country: US (occurrence: US)
  Receive Date: 20150619
  Receipt Date: 20150730
  Transmission Date: 20151125
  Serious: No
  Sender: FDA-Public Use
  Company Number: US-PFIZER INC-2015201285

PATIENT
  Age: 76 Year
  Sex: Female
  Weight: 85 kg

DRUGS (6)
  1. TAMOXIFEN CITRATE. [Suspect]
     Active Substance: TAMOXIFEN CITRATE
     Indication: BREAST CANCER METASTATIC
     Dosage: UNK
     Dates: end: 201201
  2. CYCLOPHOSPHAMIDE/DOXORUBICIN/FLUOROURACIL [Suspect]
     Active Substance: CYCLOPHOSPHAMIDE\DOXORUBICIN\FLUOROURACIL
     Indication: BREAST CANCER METASTATIC
     Dosage: UNK
  3. EXEMESTANE. [Suspect]
     Active Substance: EXEMESTANE
     Indication: BREAST CANCER METASTATIC
     Dosage: UNK
     Dates: end: 201108
  4. LETROZOLE. [Suspect]
     Active Substance: LETROZOLE
     Indication: BREAST CANCER METASTATIC
     Dosage: UNK
     Dates: end: 201101
  5. CAPECITABINE. [Suspect]
     Active Substance: CAPECITABINE
     Indication: BREAST CANCER METASTATIC
     Dosage: UNK
     Dates: end: 201206
  6. HALAVEN [Suspect]
     Active Substance: ERIBULIN MESYLATE
     Indication: BREAST CANCER METASTATIC
     Dosage: UNK
     Dates: start: 201404, end: 201405

REACTIONS (2)
  - Breast cancer metastatic [Unknown]
  - Disease progression [Unknown]
